FAERS Safety Report 23267411 (Version 1)
Quarter: 2023Q4

REPORT INFORMATION
  Report Type: Spontaneous
  Country: US (occurrence: None)
  Receive Date: 20231205
  Receipt Date: 20231205
  Transmission Date: 20240110
  Serious: Yes (Disabling)
  Sender: FDA-Public Use
  Company Number: None

PATIENT
  Age: 77 Year
  Sex: Female
  Weight: 56.25 kg

DRUGS (24)
  1. LEVAQUIN [Suspect]
     Active Substance: LEVOFLOXACIN
     Indication: Urinary tract infection
     Dosage: OTHER QUANTITY : 1 CAPSULE(S);?
     Route: 048
  2. FLONASE [Concomitant]
     Active Substance: FLUTICASONE PROPIONATE
  3. MIDODRINE [Concomitant]
     Active Substance: MIDODRINE
  4. NALTREXONE [Concomitant]
     Active Substance: NALTREXONE
  5. GLUTATHIONE [Concomitant]
     Active Substance: GLUTATHIONE
  6. antibiotic bladder instillations [Concomitant]
  7. COENZYME Q10 [Concomitant]
     Active Substance: DIETARY SUPPLEMENT\UBIDECARENONE
  8. NADH [Concomitant]
     Active Substance: NADH
  9. PQQ [Concomitant]
  10. D Ribose [Concomitant]
  11. D MANNOSE [Concomitant]
  12. AMINO ACIDS [Concomitant]
     Active Substance: AMINO ACIDS
  13. LUMBROKINASE [Concomitant]
  14. OMEGA-3 FATTY ACIDS [Concomitant]
     Active Substance: OMEGA-3 FATTY ACIDS
  15. VITAMIN B COMPLEX [Concomitant]
     Active Substance: CYANOCOBALAMIN\DEXPANTHENOL\NIACINAMIDE\PYRIDOXINE HYDROCHLORIDE\RIBOFLAVIN 5^-PHOSPHATE SODIUM\THIA
  16. MENAQUINONE 6 [Concomitant]
     Active Substance: MENAQUINONE 6
  17. VITAMIN C [Concomitant]
     Active Substance: ASCORBIC ACID
  18. VITAMIN D3 [Concomitant]
     Active Substance: CHOLECALCIFEROL
  19. PEPCID [Concomitant]
     Active Substance: FAMOTIDINE
  20. TRIMETHYLGLYCINE [Concomitant]
  21. PEPCID [Concomitant]
     Active Substance: FAMOTIDINE
  22. MOLYBDENUM [Concomitant]
     Active Substance: MOLYBDENUM
  23. CALCIUM [Concomitant]
     Active Substance: CALCIUM
  24. PHOSPHOLIPDS [Concomitant]

REACTIONS (18)
  - Paraesthesia [None]
  - Paraesthesia oral [None]
  - Paraesthesia [None]
  - Loss of personal independence in daily activities [None]
  - Toxic leukoencephalopathy [None]
  - Discomfort [None]
  - Atypical migraine [None]
  - Chronic fatigue syndrome [None]
  - Chronic fatigue syndrome [None]
  - Autonomic nervous system imbalance [None]
  - Nausea [None]
  - Dizziness [None]
  - Multi-organ disorder [None]
  - Tendon pain [None]
  - Myalgia [None]
  - Toxicity to various agents [None]
  - Quality of life decreased [None]
  - Victim of crime [None]

NARRATIVE: CASE EVENT DATE: 20190914
